FAERS Safety Report 7573765-8 (Version None)
Quarter: 2011Q2

REPORT INFORMATION
  Report Type: 
  Country: None (occurrence: None)
  Receive Date: 20110627
  Receipt Date: 20110621
  Transmission Date: 20111010
  Serious: Yes (Other)
  Sender: FDA-Public Use
  Company Number: US-PFIZER INC-2011138235

PATIENT
  Sex: Female

DRUGS (6)
  1. ABILIFY [Suspect]
     Dosage: UNK
  2. LAMICTAL [Suspect]
     Dosage: UNK
  3. KLONOPIN [Concomitant]
     Dosage: UNK
  4. GEODON [Suspect]
     Dosage: UNK
  5. ADDERALL 10 [Concomitant]
     Dosage: UNK
  6. CYMBALTA [Suspect]
     Dosage: UNK

REACTIONS (5)
  - WEIGHT INCREASED [None]
  - INSOMNIA [None]
  - SEDATION [None]
  - DEPRESSED MOOD [None]
  - HEADACHE [None]
